FAERS Safety Report 24068551 (Version 1)
Quarter: 2024Q3

REPORT INFORMATION
  Report Type: Spontaneous
  Country: US (occurrence: US)
  Receive Date: 20240710
  Receipt Date: 20240710
  Transmission Date: 20241017
  Serious: No
  Sender: ROCHE
  Company Number: US-ROCHE-3540698

PATIENT
  Sex: Female

DRUGS (6)
  1. ENTRECTINIB [Suspect]
     Active Substance: ENTRECTINIB
     Indication: Medullary thyroid cancer
     Route: 048
  2. ENTRECTINIB [Suspect]
     Active Substance: ENTRECTINIB
     Route: 048
  3. SELPERCATINIB [Suspect]
     Active Substance: SELPERCATINIB
     Indication: Medullary thyroid cancer
     Route: 048
  4. SELPERCATINIB [Suspect]
     Active Substance: SELPERCATINIB
     Route: 048
  5. LAROTRECTINIB [Concomitant]
     Active Substance: LAROTRECTINIB
     Route: 048
  6. LAROTRECTINIB [Concomitant]
     Active Substance: LAROTRECTINIB
     Route: 048

REACTIONS (7)
  - Disease progression [Unknown]
  - Memory impairment [Unknown]
  - Fatigue [Unknown]
  - Visual impairment [Unknown]
  - Diarrhoea [Unknown]
  - Dry eye [Unknown]
  - Dry mouth [Unknown]
